FAERS Safety Report 9875431 (Version 1)
Quarter: 2013Q2

REPORT INFORMATION
  Report Type: Spontaneous
  Country: US (occurrence: None)
  Receive Date: 20121107
  Receipt Date: 20121107
  Transmission Date: 20140414
  Serious: Yes (Other)
  Sender: FDA-Public Use
  Company Number: 2012HGS-003860

PATIENT
  Age: 40 Year
  Sex: Female

DRUGS (17)
  1. BENLYSTA [Suspect]
     Indication: SYSTEMIC LUPUS ERYTHEMATOSUS
     Route: 041
     Dates: start: 20110814
  2. LEVOXYL (LEVOTHYROXINE SODIUM) (LEVOTHYROXINE SODIUM) [Concomitant]
  3. CYMBALTA (DULOXETINE HYDROCHLORIDE) (DULOXETINE HYDROCHLORIDE) [Concomitant]
  4. PLAQUENIL (HYDROCHLOROQUINE SULFATE) (HYDROCHLOROQUINE SULFATE) [Concomitant]
  5. FERROUS SULFATE (FERROUS SULFATE) (FERROUS SULFATE) [Concomitant]
  6. GABAPENTIN (GABAPENTIN) (GABAPENTIN) [Concomitant]
  7. VITAMIN D (ERGOCALCIFEROL) (ERGOCALCIFEROL) [Concomitant]
  8. ACETYLSALICYLIC ACID (ACETYLSALICYLIC ACID) (ACETYLSALICYLIC ACID) [Concomitant]
  9. SYMBICORT (BUDESONIDE W/FORMOTEROL FUMARATE) (FORMOTEROL FUMARATE, BUDESONIDE) [Concomitant]
  10. DEPLIN (CALCIUM LEVOMEFOLATE) (CALCIUM LEVOMEFOLATE) [Concomitant]
  11. NUVIGIL (ARMODAFINIL) (ARMODAFINIL) [Concomitant]
  12. ALLEGRA (FEXOFENADINE HYDROCHLORIDE) (FEXOFENADINE HYDROCHLORIDE) [Concomitant]
  13. SINGULAIR (MONTELUKAST SODIUM) (MONTELUKAST SODIUM) [Concomitant]
  14. CLARITHROMYCIN (CLARITHROMYCIN) (CLARITHROMYCIN) [Concomitant]
  15. NASONEX (MOMETASONE FUROATE) (MOMETASONE FUROATE) [Concomitant]
  16. AUGMENTIN (AMOXI-CLAVULANICO) (AMOXICILLIN, CLAVULANIC ACID) [Concomitant]
  17. CHLOR TRIMETON (CHLORPHENAMINE MALEATE) (CHLORPHENAMINE MALEATE) [Concomitant]

REACTIONS (1)
  - Eye infection [None]
